FAERS Safety Report 11633567 (Version 1)
Quarter: 2015Q4

REPORT INFORMATION
  Report Type: Spontaneous
  Country: JP (occurrence: JP)
  Receive Date: 20151015
  Receipt Date: 20151015
  Transmission Date: 20160304
  Serious: Yes (Other)
  Sender: FDA-Public Use
  Company Number: JP-TEVA-600679ISR

PATIENT
  Age: 47 Year
  Sex: Male
  Weight: 131.6 kg

DRUGS (8)
  1. ETOPOSIDE. [Suspect]
     Active Substance: ETOPOSIDE
     Indication: MYELOID LEUKAEMIA
     Dosage: 210 MG/BODY ON DAYS 1 TO 5
     Route: 065
  2. VINDESINE [Suspect]
     Active Substance: VINDESINE
     Indication: MYELOID LEUKAEMIA
     Dosage: 4.2 MG/BODY ON DAY 10
     Route: 065
  3. MITOXANTRONE [Suspect]
     Active Substance: MITOXANTRONE HYDROCHLORIDE
     Indication: MYELOID LEUKAEMIA
     Dosage: 16 MG/BODY ON DAYS 1 TO 3
     Route: 065
  4. ACLARUBICIN [Suspect]
     Active Substance: ACLARUBICIN
     Indication: MYELOID LEUKAEMIA
     Dosage: 40 MG/BODY ON DAYS 1 TO 5
     Route: 065
  5. IDARUBICIN [Suspect]
     Active Substance: IDARUBICIN
     Indication: MYELOID LEUKAEMIA
     Dosage: 25 MG/BODY ON DAYS 1 TO 3
     Route: 065
  6. DAUNORUBICIN [Suspect]
     Active Substance: DAUNORUBICIN
     Indication: MYELOID LEUKAEMIA
     Dosage: 100 MG/BODY ON DAYS 1 TO 3
     Route: 065
  7. CYTARABINE. [Suspect]
     Active Substance: CYTARABINE
     Indication: MYELOID LEUKAEMIA
     Dosage: 220 MG/BODY ON DAYS 1 TO 7
  8. VINCRISTINE [Suspect]
     Active Substance: VINCRISTINE
     Indication: MYELOID LEUKAEMIA
     Dosage: 1.7 MG/BODY ON DAY 8
     Route: 065

REACTIONS (1)
  - Febrile neutropenia [Recovered/Resolved]
